FAERS Safety Report 23444306 (Version 2)
Quarter: 2024Q1

REPORT INFORMATION
  Report Type: Spontaneous
  Country: US (occurrence: US)
  Receive Date: 20240125
  Receipt Date: 20240221
  Transmission Date: 20240409
  Serious: No
  Sender: FDA-Public Use
  Company Number: US-Vifor (International) Inc.-VIT-2024-00471

PATIENT
  Age: 59 Year
  Sex: Male
  Weight: 80 kg

DRUGS (4)
  1. MIRCERA [Suspect]
     Active Substance: METHOXY POLYETHYLENE GLYCOL-EPOETIN BETA
     Indication: Anaemia
     Dosage: LATEST ADMINISTRATION
     Route: 040
     Dates: start: 20240109, end: 20240109
  2. CALCITRIOL [Concomitant]
     Active Substance: CALCITRIOL
     Indication: Hyperparathyroidism
     Dosage: 0.5 Q EVERY THERAPY (TX)
     Route: 048
     Dates: start: 20240109
  3. HEPARIN [Concomitant]
     Active Substance: HEPARIN SODIUM
     Indication: Anticoagulant therapy
     Dosage: 2000 U EVERY THERAPY (TX)
     Route: 040
     Dates: start: 20240109
  4. CLONIDINE [Concomitant]
     Active Substance: CLONIDINE
     Indication: Hypertension
     Route: 048
     Dates: start: 20240109

REACTIONS (2)
  - Drug hypersensitivity [Recovered/Resolved]
  - Back pain [Recovered/Resolved]

NARRATIVE: CASE EVENT DATE: 20240109
